FAERS Safety Report 6177807-6 (Version None)
Quarter: 2009Q2

REPORT INFORMATION
  Report Type: 
  Country: None (occurrence: None)
  Receive Date: 20090430
  Receipt Date: 20090415
  Transmission Date: 20091009
  Serious: Yes (Other)
  Sender: FDA-Public Use
  Company Number: 2009001165

PATIENT

DRUGS (5)
  1. ERLOTINIB(ERLOTINIB)(TABLET)(ERLOTINIB) [Suspect]
     Indication: COLORECTAL CANCER METASTATIC
     Dosage: ORAL
     Route: 048
  2. BEVACIZUMAB (INJECTION FOR INFUSION) [Suspect]
     Indication: COLORECTAL CANCER METASTATIC
     Dosage: INTRAVENOUS
     Route: 042
     Dates: start: 20081215, end: 20090324
  3. LEUCOVORIN CALCIUM [Suspect]
     Indication: COLORECTAL CANCER METASTATIC
  4. FLUOROURACIL [Suspect]
     Indication: COLORECTAL CANCER METASTATIC
  5. OXALIPLATIN [Suspect]
     Indication: COLORECTAL CANCER METASTATIC

REACTIONS (4)
  - CARDIOVASCULAR DISORDER [None]
  - DRUG TOXICITY [None]
  - PELVIC VENOUS THROMBOSIS [None]
  - PULMONARY EMBOLISM [None]
